FAERS Safety Report 16414105 (Version 1)
Quarter: 2019Q2

REPORT INFORMATION
  Report Type: Spontaneous
  Country: ES (occurrence: ES)
  Receive Date: 20190611
  Receipt Date: 20190611
  Transmission Date: 20190711
  Serious: Yes (Life-Threatening)
  Sender: FDA-Public Use
  Company Number: PHHY2019ES133224

PATIENT
  Age: 67 Year
  Sex: Male

DRUGS (1)
  1. ZOLPIDEM [Suspect]
     Active Substance: ZOLPIDEM\ZOLPIDEM TARTRATE
     Indication: PERSISTENT DEPRESSIVE DISORDER
     Dosage: 10 MG, Q24H
     Route: 048
     Dates: start: 20180109

REACTIONS (3)
  - Drug dependence [Not Recovered/Not Resolved]
  - Dependence [Not Recovered/Not Resolved]
  - Intentional overdose [Not Recovered/Not Resolved]

NARRATIVE: CASE EVENT DATE: 20180529
